APPROVED DRUG PRODUCT: MYOVIEW
Active Ingredient: TECHNETIUM TC-99M TETROFOSMIN KIT
Strength: N/A
Dosage Form/Route: INJECTABLE;INJECTION
Application: N020372 | Product #001
Applicant: MEDI-PHYSICS INC DBA GE HEALTHCARE
Approved: Feb 9, 1996 | RLD: Yes | RS: Yes | Type: RX